FAERS Safety Report 8835861 (Version 1)
Quarter: 2012Q4

REPORT INFORMATION
  Report Type: 
  Country: US (occurrence: US)
  Receive Date: 20121011
  Receipt Date: 20121011
  Transmission Date: 20130627
  Serious: No
  Sender: FDA-Public Use
  Company Number: US-PFIZER INC-2012247820

PATIENT
  Age: 50 Year
  Sex: Female
  Weight: 95 kg

DRUGS (15)
  1. PREMARIN VAGINAL CREAM [Suspect]
     Indication: MENOPAUSAL SYMPTOMS
     Dosage: 1 mg one to three times in a week as needed
     Route: 067
     Dates: start: 20120808, end: 201209
  2. HYDROCHLOROTHIAZIDE [Concomitant]
     Indication: HYPERTENSION
     Dosage: 25 mg, daily
  3. TRAMADOL [Concomitant]
     Indication: ARTHRITIS
     Dosage: 50 mg, 2x/day
  4. THYROXINE [Concomitant]
     Indication: THYROID DISORDER
     Dosage: UNK
  5. BUPROPION [Concomitant]
     Indication: NERVOUS SYSTEM DISORDER
     Dosage: 300 mg, daily
  6. RANITIDINE [Concomitant]
     Indication: GASTROOESOPHAGEAL REFLUX DISEASE
     Dosage: 300 mg, 2x/day
  7. BUSPIRONE [Concomitant]
     Indication: ANXIETY
     Dosage: 30 mg, 2x/day
  8. METHOCARBAMOL [Concomitant]
     Indication: FIBROMYALGIA
     Dosage: 750 mg, as needed
  9. METHOCARBAMOL [Concomitant]
     Indication: MUSCLE SPASMS
  10. DIAZEPAM [Concomitant]
     Indication: FIBROMYALGIA
     Dosage: 5 mg, 3x/day
  11. DIAZEPAM [Concomitant]
     Indication: NERVOUS SYSTEM DISORDER
  12. CITALOPRAM [Concomitant]
     Indication: DEPRESSION
     Dosage: 20 mg, daily
  13. DOCUSATE SODIUM [Concomitant]
     Indication: ABNORMAL FAECES
     Dosage: 100 mg, daily at night time
  14. MELATONIN [Concomitant]
     Indication: SLEEP DISORDER
     Dosage: 3 mg, daily
  15. MULTIVITAMINS [Concomitant]
     Dosage: UNK

REACTIONS (3)
  - Fungal infection [Recovered/Resolved]
  - Vulvovaginal discomfort [Recovered/Resolved]
  - Pruritus [Recovered/Resolved]
